FAERS Safety Report 9566641 (Version 2)
Quarter: 2013Q3

REPORT INFORMATION
  Report Type: Report from Study
  Country: TW (occurrence: TW)
  Receive Date: 20130930
  Receipt Date: 20130930
  Transmission Date: 20140515
  Serious: No
  Sender: FDA-Public Use
  Company Number: PHHY2012TW077432

PATIENT
  Age: 67 Year
  Sex: Female

DRUGS (23)
  1. AMN107 [Suspect]
     Dosage: UNK
  2. PARMASON [Concomitant]
     Indication: PERIODONTAL DISEASE
     Dosage: UNK
     Dates: end: 20101021
  3. PARMASON [Concomitant]
     Indication: PROPHYLAXIS
     Dosage: UNK
  4. XANAX [Concomitant]
     Indication: INSOMNIA
     Dosage: UNK
  5. SEMI-NAX [Concomitant]
     Indication: INSOMNIA
     Dosage: UNK
  6. RINDERON-V [Concomitant]
     Indication: SKIN EXFOLIATION
     Dosage: UNK
     Dates: end: 20101004
  7. RINDERON-V [Concomitant]
     Indication: PRURITUS
  8. ALLEGRA [Concomitant]
     Indication: RASH
     Dosage: UNK
     Dates: end: 20100804
  9. NORVASC [Concomitant]
     Indication: HYPERTENSION
     Dosage: UNK
  10. SENOKOT                                 /UNK/ [Concomitant]
     Indication: CONSTIPATION
     Dosage: UNK
     Dates: end: 20101230
  11. SENOKOT                                 /UNK/ [Concomitant]
     Dosage: UNK
     Dates: end: 20110609
  12. ACETAMINOPHEN [Concomitant]
     Indication: PHARYNGITIS
     Dosage: UNK
     Dates: end: 20120124
  13. METOCLOPRAMIDE [Concomitant]
     Indication: GASTROENTERITIS
     Dosage: UNK
     Dates: end: 20120121
  14. OSELTAMIVIR [Concomitant]
     Indication: PHARYNGITIS
     Dosage: UNK
     Dates: end: 20120126
  15. LOPERAMIDE [Concomitant]
     Indication: GASTROENTERITIS
     Dosage: UNK
     Dates: end: 20120124
  16. MEBEVERINE [Concomitant]
     Indication: GASTROENTERITIS
     Dosage: UNK
     Dates: end: 20120124
  17. BROWN MIXTURE                      /01682301/ [Concomitant]
     Indication: PHARYNGITIS
     Dosage: UNK
     Dates: end: 20120124
  18. GASCON [Concomitant]
     Indication: GASTROENTERITIS
     Dosage: UNK
     Dates: end: 20120124
  19. RHIN [Concomitant]
     Indication: PHARYNGITIS
     Dosage: UNK
     Dates: end: 20120124
  20. DOMPERIDONE [Concomitant]
     Indication: GASTROENTERITIS
     Dosage: UNK
     Dates: end: 20120124
  21. QUINAPRIL [Concomitant]
     Indication: HYPERTENSION
     Dosage: UNK
     Dates: end: 20120531
  22. LOSARTAN [Concomitant]
     Indication: HYPERTENSION
     Dosage: UNK
  23. PIROXICAM [Concomitant]
     Indication: ROTATOR CUFF SYNDROME
     Dosage: UNK
     Dates: end: 20120622

REACTIONS (1)
  - Trigger finger [Unknown]
